FAERS Safety Report 19998070 (Version 1)
Quarter: 2021Q4

REPORT INFORMATION
  Report Type: Spontaneous
  Country: US (occurrence: US)
  Receive Date: 20211026
  Receipt Date: 20211026
  Transmission Date: 20220303
  Serious: Yes (Hospitalization, Other)
  Sender: FDA-Public Use
  Company Number: US-SANOFI-00818356

PATIENT
  Age: 87 Year
  Sex: Male

DRUGS (1)
  1. MULTAQ [Suspect]
     Active Substance: DRONEDARONE
     Indication: Atrial fibrillation
     Dosage: 400 MG, BID (DRUG STRUCTURE DOSAGE : 400 MG DRUG INTERVAL DOSAGE : TWICE ADAY)

REACTIONS (5)
  - Cardiac failure congestive [Recovering/Resolving]
  - Atrial fibrillation [Recovered/Resolved]
  - Drug ineffective [Unknown]
  - Feeling abnormal [Unknown]
  - Saliva altered [Unknown]
